FAERS Safety Report 5057006-1 (Version None)
Quarter: 2006Q2

REPORT INFORMATION
  Report Type: 
  Country: None (occurrence: None)
  Receive Date: 20060622
  Receipt Date: 20060130
  Transmission Date: 20061013
  Serious: Yes (Death)
  Sender: FDA-Public Use
  Company Number: US-JNJFOC-20060100566

PATIENT
  Age: 42 Year
  Sex: Male
  Weight: 72.5755 kg

DRUGS (4)
  1. DURAGESIC-100 [Suspect]
     Indication: PAIN
     Dosage: 25 UG/HR, 1 IN 72 HOUR, TRANSDERMAL
     Route: 062
     Dates: start: 20051222
  2. OXYIR (OXYCODONE HYDROCHLORIDE) TABLET [Concomitant]
  3. MS CONTIN [Concomitant]
  4. DILAUDID [Concomitant]

REACTIONS (3)
  - ALCOHOL POISONING [None]
  - DRUG TOXICITY [None]
  - INCORRECT DOSE ADMINISTERED [None]
